FAERS Safety Report 5823652-8 (Version None)
Quarter: 2008Q3

REPORT INFORMATION
  Report Type: 
  Country: None (occurrence: None)
  Receive Date: 20080725
  Receipt Date: 20080713
  Transmission Date: 20090109
  Serious: Yes (Other)
  Sender: FDA-Public Use
  Company Number: US-PFIZER INC-2008058814

PATIENT
  Sex: Female
  Weight: 127 kg

DRUGS (13)
  1. CHANTIX [Suspect]
     Indication: SMOKING CESSATION THERAPY
  2. INSULIN HUMAN [Concomitant]
  3. HUMALOG [Concomitant]
  4. METFORMIN HCL [Concomitant]
  5. AMARYL [Concomitant]
  6. LIPITOR [Concomitant]
  7. ALDACTONE [Concomitant]
  8. DEPAKOTE [Concomitant]
  9. DETROL LA [Concomitant]
  10. MANDELAMINE [Concomitant]
  11. ZYPREXA [Concomitant]
  12. LORAZEPAM [Concomitant]
  13. XANAX [Concomitant]

REACTIONS (3)
  - HEADACHE [None]
  - NAUSEA [None]
  - OEDEMA PERIPHERAL [None]
